FAERS Safety Report 19593515 (Version 2)
Quarter: 2021Q3

REPORT INFORMATION
  Report Type: Report from Study
  Country: None (occurrence: US)
  Receive Date: 20210722
  Receipt Date: 20210805
  Transmission Date: 20211014
  Serious: No
  Sender: FDA-Public Use
  Company Number: US-ABBVIE-21K-163-3862895-00

PATIENT
  Age: 84 Year
  Sex: Female
  Weight: 54.03 kg

DRUGS (6)
  1. HUMIRA [Suspect]
     Active Substance: ADALIMUMAB
     Indication: COLITIS ULCERATIVE
     Route: 058
     Dates: start: 202103
  2. PREDNISONE. [Concomitant]
     Active Substance: PREDNISONE
     Indication: ECZEMA
  3. HUMIRA [Suspect]
     Active Substance: ADALIMUMAB
     Indication: COLITIS ULCERATIVE
     Route: 058
     Dates: start: 202103, end: 2021
  4. HUMIRA [Suspect]
     Active Substance: ADALIMUMAB
     Indication: COLITIS ULCERATIVE
     Dosage: 2 PENS/DAY 1
     Route: 058
     Dates: start: 20210414, end: 20210414
  5. PREDNISONE. [Concomitant]
     Active Substance: PREDNISONE
  6. PRILOSEC [Concomitant]
     Active Substance: OMEPRAZOLE MAGNESIUM
     Indication: PRODUCT USED FOR UNKNOWN INDICATION

REACTIONS (23)
  - Mucous stools [Recovered/Resolved]
  - Fear of injection [Not Recovered/Not Resolved]
  - Anxiety [Recovering/Resolving]
  - Constipation [Not Recovered/Not Resolved]
  - Haematochezia [Not Recovered/Not Resolved]
  - Arthralgia [Not Recovered/Not Resolved]
  - Abdominal distension [Unknown]
  - Anal incontinence [Not Recovered/Not Resolved]
  - Hyperhidrosis [Unknown]
  - Depressed mood [Not Recovered/Not Resolved]
  - Fatigue [Unknown]
  - Defaecation urgency [Not Recovered/Not Resolved]
  - Diarrhoea [Recovered/Resolved]
  - Increased upper airway secretion [Recovered/Resolved]
  - Abdominal distension [Not Recovered/Not Resolved]
  - Spinal fracture [Recovering/Resolving]
  - Nausea [Not Recovered/Not Resolved]
  - Back pain [Recovering/Resolving]
  - Oesophageal disorder [Not Recovered/Not Resolved]
  - Insomnia [Not Recovered/Not Resolved]
  - Proctalgia [Not Recovered/Not Resolved]
  - Rectal haemorrhage [Recovered/Resolved]
  - Pain [Recovering/Resolving]

NARRATIVE: CASE EVENT DATE: 2021
